FAERS Safety Report 12781033 (Version 1)
Quarter: 2016Q3

REPORT INFORMATION
  Report Type: Spontaneous
  Country: US (occurrence: US)
  Receive Date: 20160926
  Receipt Date: 20160926
  Transmission Date: 20161109
  Serious: Yes (Other)
  Sender: FDA-Public Use
  Company Number: US-PFIZER INC-2016431740

PATIENT
  Age: 57 Year
  Sex: Female
  Weight: 72.57 kg

DRUGS (4)
  1. CHAPSTICK MEDICATED [Suspect]
     Active Substance: CAMPHOR (SYNTHETIC)\MENTHOL\PETROLATUM\PHENOL
     Indication: LIP DRY
     Dosage: 1 APPLICATION OF THE MEDICATION
     Dates: start: 20160912, end: 20160912
  2. FLORAJEN 3 [Concomitant]
     Active Substance: PROBIOTICS NOS
     Indication: GASTROINTESTINAL DISORDER
     Dosage: 460 MG, DAILY
  3. VITAMIN B12 [Concomitant]
     Active Substance: CYANOCOBALAMIN
     Indication: NUTRITIONAL SUPPLEMENTATION
     Dosage: 1 DOSE AS NEEDED
     Route: 048
  4. EFFEXOR [Concomitant]
     Active Substance: VENLAFAXINE HYDROCHLORIDE
     Indication: ANXIETY
     Dosage: 75 MG, 3X/DAY
     Route: 048

REACTIONS (4)
  - Expired product administered [Recovered/Resolved]
  - Pruritus [Recovering/Resolving]
  - Urinary tract infection [Unknown]
  - Urticaria [Not Recovered/Not Resolved]

NARRATIVE: CASE EVENT DATE: 20160912
